FAERS Safety Report 4465009-0 (Version None)
Quarter: 2004Q4

REPORT INFORMATION
  Report Type: 
  Country: None (occurrence: None)
  Receive Date: 20041004
  Receipt Date: 20040616
  Transmission Date: 20050328
  Serious: No
  Sender: FDA-Public Use
  Company Number: 374167

PATIENT
  Age: 83 Year
  Sex: Female

DRUGS (2)
  1. COREG [Suspect]
     Dosage: 25MG TWICE PER DAY
     Route: 048
     Dates: start: 20020101, end: 20040606
  2. BENICAR [Concomitant]

REACTIONS (3)
  - PHARMACEUTICAL PRODUCT COMPLAINT [None]
  - RASH [None]
  - RASH ERYTHEMATOUS [None]
